FAERS Safety Report 12167171 (Version 2)
Quarter: 2016Q1

REPORT INFORMATION
  Report Type: Other
  Country: US (occurrence: US)
  Receive Date: 20160310
  Receipt Date: 20160318
  Transmission Date: 20160526
  Serious: Yes (Other)
  Sender: FDA-Public Use
  Company Number: US-SHIRE-US201602723

PATIENT
  Age: 31 Year
  Sex: Female

DRUGS (2)
  1. CINRYZE [Suspect]
     Active Substance: HUMAN C1-ESTERASE INHIBITOR
     Indication: PROPHYLAXIS
     Dosage: UNK, OTHER (1500 UNITS EVERY 4 DAYS)
     Route: 042
     Dates: start: 20100326
  2. CINRYZE [Suspect]
     Active Substance: HUMAN C1-ESTERASE INHIBITOR
     Indication: HEREDITARY ANGIOEDEMA
     Dosage: 2000 UNITS, OTHER (EVERY THREE DAYS)
     Route: 042
     Dates: start: 20110311

REACTIONS (4)
  - Prescribed overdose [Not Recovered/Not Resolved]
  - Swelling face [Unknown]
  - Localised oedema [Recovered/Resolved]
  - Hereditary angioedema [Unknown]

NARRATIVE: CASE EVENT DATE: 20100326
